FAERS Safety Report 10068666 (Version 1)
Quarter: 2014Q2

REPORT INFORMATION
  Report Type: Spontaneous
  Country: US (occurrence: US)
  Receive Date: 20140409
  Receipt Date: 20140409
  Transmission Date: 20141212
  Serious: No
  Sender: FDA-Public Use
  Company Number: US-TEVA-474487USA

PATIENT
  Sex: Female

DRUGS (2)
  1. PARAGARD 380A [Suspect]
     Indication: CONTRACEPTION
     Route: 015
     Dates: start: 20140403, end: 20140403
  2. PARAGARD 380A [Suspect]
     Route: 015
     Dates: start: 20140403

REACTIONS (2)
  - Vaginal infection [Unknown]
  - Complication of device insertion [Unknown]
